FAERS Safety Report 5802091-X (Version None)
Quarter: 2008Q3

REPORT INFORMATION
  Report Type: 
  Country: None (occurrence: None)
  Receive Date: 20080707
  Receipt Date: 20080627
  Transmission Date: 20090109
  Serious: Yes (Other)
  Sender: FDA-Public Use
  Company Number: PHHY2008CA12820

PATIENT
  Sex: Male

DRUGS (2)
  1. CLOZARIL [Suspect]
     Dosage: UNK
     Dates: start: 20020211
  2. I.V. SOLUTIONS [Concomitant]

REACTIONS (4)
  - ANXIETY [None]
  - ELECTROLYTE DEPLETION [None]
  - THOUGHT BLOCKING [None]
  - UNRESPONSIVE TO STIMULI [None]
